FAERS Safety Report 24535313 (Version 1)
Quarter: 2024Q4

REPORT INFORMATION
  Report Type: Report from Study
  Country: US (occurrence: US)
  Receive Date: 20241022
  Receipt Date: 20241022
  Transmission Date: 20250115
  Serious: Yes (Death, Other)
  Sender: ALEXION PHARMACEUTICALS
  Company Number: US-AstraZeneca-CH-00727983A

PATIENT

DRUGS (4)
  1. ACALABRUTINIB [Suspect]
     Active Substance: ACALABRUTINIB
     Route: 065
  2. ACALABRUTINIB [Suspect]
     Active Substance: ACALABRUTINIB
  3. ACALABRUTINIB [Suspect]
     Active Substance: ACALABRUTINIB
     Route: 065
  4. ACALABRUTINIB [Suspect]
     Active Substance: ACALABRUTINIB

REACTIONS (1)
  - Death [Fatal]
